FAERS Safety Report 19645878 (Version 3)
Quarter: 2022Q1

REPORT INFORMATION
  Report Type: Report from Study
  Country: BR (occurrence: BR)
  Receive Date: 20210802
  Receipt Date: 20220316
  Transmission Date: 20220423
  Serious: Yes (Hospitalization, Other)
  Sender: FDA-Public Use
  Company Number: BR-NOVARTISPH-NVSC2021BR168929

PATIENT
  Sex: Male

DRUGS (2)
  1. TAFINLAR [Suspect]
     Active Substance: DABRAFENIB MESYLATE
     Indication: Malignant melanoma
     Dosage: UNK (START DATE IN FEB)(STOP DATE AT THE BEGINNING OF JANUARY)
     Route: 065
  2. MEKINIST [Suspect]
     Active Substance: TRAMETINIB DIMETHYL SULFOXIDE
     Indication: Malignant melanoma
     Dosage: UNK (START DATE IN FEB)(STOP DATE AT THE BEGINNING OF JANUARY)
     Route: 065

REACTIONS (11)
  - Brain oedema [Unknown]
  - Metastases to bone marrow [Unknown]
  - Metastases to spinal cord [Unknown]
  - Granuloma [Unknown]
  - Skin mass [Unknown]
  - Hypersensitivity [Not Recovered/Not Resolved]
  - Pyrexia [Unknown]
  - Inflammation [Unknown]
  - Skin exfoliation [Unknown]
  - Tumour pain [Not Recovered/Not Resolved]
  - Back pain [Not Recovered/Not Resolved]
